FAERS Safety Report 22267168 (Version 2)
Quarter: 2023Q2

REPORT INFORMATION
  Report Type: Spontaneous
  Country: US (occurrence: US)
  Receive Date: 20230428
  Receipt Date: 20230615
  Transmission Date: 20230722
  Serious: Yes (Other)
  Sender: FDA-Public Use
  Company Number: US-PFIZER INC-202300167535

PATIENT
  Age: 63 Year
  Sex: Female
  Weight: 61.224 kg

DRUGS (2)
  1. GENOTROPIN [Suspect]
     Active Substance: SOMATROPIN
     Indication: Hypothalamo-pituitary disorder
     Dosage: 2.2 MG, DAILY(2.2 MG DAILY AT NIGHT (1.2 + 1.0 MG FOR TOTAL DAILY DOSE 2.2 MG))
     Dates: start: 2001
  2. GENOTROPIN [Suspect]
     Active Substance: SOMATROPIN
     Dosage: 2.2 MG, DAILY(2.2 MG DAILY AT NIGHT (1.2 + 1.0 MG FOR TOTAL DAILY DOSE 2.2 MG))
     Dates: start: 2001

REACTIONS (1)
  - Upper limb fracture [Unknown]

NARRATIVE: CASE EVENT DATE: 20010101
